FAERS Safety Report 4824511-X (Version None)
Quarter: 2005Q4

REPORT INFORMATION
  Report Type: 
  Country: None (occurrence: None)
  Receive Date: 20051108
  Receipt Date: 20051024
  Transmission Date: 20060501
  Serious: Yes (Hospitalization)
  Sender: FDA-Public Use
  Company Number: EWC051046483

PATIENT
  Age: 57 Year
  Sex: Male

DRUGS (3)
  1. ZYPREXA [Suspect]
     Dosage: 10 MG/1 DAY
     Dates: start: 20050224, end: 20050316
  2. CITALOPRAM HYDROBROMIDE [Concomitant]
  3. REMERON [Concomitant]

REACTIONS (2)
  - ADHESION [None]
  - ILEUS [None]
